FAERS Safety Report 24613770 (Version 1)
Quarter: 2024Q4

REPORT INFORMATION
  Report Type: Spontaneous
  Country: ES (occurrence: ES)
  Receive Date: 20241113
  Receipt Date: 20241113
  Transmission Date: 20250115
  Serious: Yes (Hospitalization, Disabling)
  Sender: AUROBINDO
  Company Number: ES-AEMPS-1587031

PATIENT
  Age: 67 Year
  Sex: Male
  Weight: 77 kg

DRUGS (1)
  1. ATORVASTATIN [Suspect]
     Active Substance: ATORVASTATIN
     Indication: Prophylaxis
     Dosage: 20 MILLIGRAM, ONCE A DAY (20 MG 0-0-1)
     Route: 048
     Dates: start: 20171001

REACTIONS (7)
  - Fatigue [Recovered/Resolved]
  - Chest pain [Recovered/Resolved]
  - Abdominal pain [Recovered/Resolved]
  - Headache [Recovered/Resolved]
  - Palpitations [Recovered/Resolved]
  - Chest discomfort [Recovered/Resolved]
  - Blood pressure fluctuation [Recovered/Resolved]

NARRATIVE: CASE EVENT DATE: 20171015
